FAERS Safety Report 4815717-4 (Version None)
Quarter: 2005Q4

REPORT INFORMATION
  Report Type: 
  Country: None (occurrence: None)
  Receive Date: 20051026
  Receipt Date: 20051011
  Transmission Date: 20060501
  Serious: Yes (Hospitalization)
  Sender: FDA-Public Use
  Company Number: USA0510110517

PATIENT
  Age: 41 Year
  Sex: Female
  Weight: 95 kg

DRUGS (1)
  1. ZYPREXA [Suspect]
     Indication: SCHIZOPHRENIA
     Dosage: 7.5 MG/THREE DAY
     Dates: start: 19961202, end: 19990101

REACTIONS (6)
  - DIABETES MELLITUS [None]
  - FLUID RETENTION [None]
  - HOT FLUSH [None]
  - MOBILITY DECREASED [None]
  - PRESCRIBED OVERDOSE [None]
  - WEIGHT INCREASED [None]
